FAERS Safety Report 7787291-4 (Version None)
Quarter: 2011Q3

REPORT INFORMATION
  Report Type: 
  Country: None (occurrence: None)
  Receive Date: 20110929
  Receipt Date: 20110922
  Transmission Date: 20111222
  Serious: Yes (Hospitalization)
  Sender: FDA-Public Use
  Company Number: DE-UCBSA-530#6#2007-00020

PATIENT
  Sex: Female
  Weight: 70 kg

DRUGS (9)
  1. NEUPRO [Suspect]
     Indication: PARKINSON'S DISEASE
     Route: 062
     Dates: start: 20070207, end: 20070209
  2. MOTENS [Concomitant]
     Indication: HYPERTENSION
     Route: 048
     Dates: start: 20020101
  3. JODID [Concomitant]
     Indication: GOITRE
     Route: 048
     Dates: start: 20020101
  4. ENAPLUS [Concomitant]
     Indication: HYPERTENSION
     Route: 048
     Dates: start: 20060401, end: 20070201
  5. PLAVIX [Concomitant]
     Indication: CEREBROVASCULAR ACCIDENT
     Route: 048
     Dates: start: 20020201
  6. BENALAPRIL [Concomitant]
     Indication: HYPERTENSION
     Dosage: UNKNOWN MG
     Dates: start: 20070201
  7. LACIDIPIN [Concomitant]
     Indication: HYPERTENSION
     Dates: start: 20070201
  8. DOXEPIN [Concomitant]
     Indication: DEPRESSION
     Route: 048
     Dates: start: 20020101
  9. SIMVASTATIN [Concomitant]
     Indication: HYPERCHOLESTEROLAEMIA
     Route: 048
     Dates: start: 20020501

REACTIONS (1)
  - CIRCULATORY COLLAPSE [None]
